FAERS Safety Report 5558669-4 (Version None)
Quarter: 2007Q4

REPORT INFORMATION
  Report Type: 
  Country: None (occurrence: None)
  Receive Date: 20071214
  Receipt Date: 20071204
  Transmission Date: 20080405
  Serious: Yes (Other)
  Sender: FDA-Public Use
  Company Number: JP-PFIZER INC-2007102653

PATIENT
  Age: 60 Year
  Sex: Male

DRUGS (1)
  1. ZYVOX [Suspect]
     Indication: STAPHYLOCOCCAL INFECTION
     Dosage: DAILY DOSE:600MG
     Route: 042
     Dates: start: 20071101, end: 20071201

REACTIONS (1)
  - HALLUCINATION [None]
